FAERS Safety Report 6228760-8 (Version None)
Quarter: 2009Q2

REPORT INFORMATION
  Report Type: 
  Country: None (occurrence: None)
  Receive Date: 20090615
  Receipt Date: 20090605
  Transmission Date: 20091009
  Serious: Yes (Other)
  Sender: FDA-Public Use
  Company Number: US-JNJFOC-20090604018

PATIENT

DRUGS (1)
  1. KETOCONAZOLE [Suspect]
     Indication: CUTANEOUS LEISHMANIASIS
     Route: 048

REACTIONS (1)
  - HEPATITIS [None]
